FAERS Safety Report 21922023 (Version 1)
Quarter: 2023Q1

REPORT INFORMATION
  Report Type: Report from Study
  Country: US (occurrence: US)
  Receive Date: 20230127
  Receipt Date: 20230127
  Transmission Date: 20230418
  Serious: No
  Sender: FDA-Public Use
  Company Number: US-002147023-NVSC2023US015059

PATIENT
  Sex: Female

DRUGS (2)
  1. COSENTYX [Suspect]
     Active Substance: SECUKINUMAB
     Indication: Ankylosing spondylitis
     Dosage: 150 MG, QMO
     Route: 058
  2. COSENTYX [Suspect]
     Active Substance: SECUKINUMAB
     Dosage: 150 MG (MAINTENANCE DOSE WITHOUT INITIAL LOADING DOSES IN DECEMBER)
     Route: 065

REACTIONS (5)
  - Skin fragility [Unknown]
  - Contusion [Unknown]
  - Skin lesion [Unknown]
  - Food allergy [Unknown]
  - Skin atrophy [Unknown]
